FAERS Safety Report 12488942 (Version 1)
Quarter: 2016Q2

REPORT INFORMATION
  Report Type: Spontaneous
  Country: IT (occurrence: IT)
  Receive Date: 20160622
  Receipt Date: 20160622
  Transmission Date: 20160815
  Serious: Yes (Other)
  Sender: FDA-Public Use
  Company Number: IT-INCYTE CORPORATION-2016IN003637

PATIENT
  Age: 83 Year
  Sex: Male

DRUGS (3)
  1. HYDROXYUREA. [Suspect]
     Active Substance: HYDROXYUREA
     Indication: MYELOFIBROSIS
     Dosage: 2 DF, QD (2 POSOLOGIG UNIT)
     Route: 048
     Dates: start: 20030101, end: 20130521
  2. JAKAFI [Suspect]
     Active Substance: RUXOLITINIB
     Indication: SPLENOMEGALY
     Dosage: 20 MG, BID
     Route: 048
     Dates: start: 20130523, end: 20160607
  3. JAKAFI [Suspect]
     Active Substance: RUXOLITINIB
     Indication: MYELOFIBROSIS
     Dosage: 10 MG, BID
     Route: 048

REACTIONS (4)
  - Skin squamous cell carcinoma metastatic [Unknown]
  - Metastases to lymph nodes [Unknown]
  - Malignant neoplasm of auricular cartilage [Unknown]
  - Thrombocytopenia [Unknown]

NARRATIVE: CASE EVENT DATE: 20150301
